FAERS Safety Report 6988811-X (Version None)
Quarter: 2010Q3

REPORT INFORMATION
  Report Type: 
  Country: None (occurrence: None)
  Receive Date: 20100916
  Receipt Date: 20100902
  Transmission Date: 20110219
  Serious: Yes (Hospitalization, Other)
  Sender: FDA-Public Use
  Company Number: PHHY2010FR61041

PATIENT
  Sex: Male

DRUGS (17)
  1. CERTICAN [Suspect]
     Indication: HEART TRANSPLANT
     Dosage: 1.4 MG, BID
     Dates: start: 20090801
  2. CELLCEPT [Concomitant]
     Indication: IMMUNOSUPPRESSION
     Dosage: 750 MG BID
     Dates: start: 20040101
  3. CORTANCYL [Concomitant]
     Indication: IMMUNOSUPPRESSION
     Dosage: 4 MG, DAILY
     Dates: start: 20040101
  4. NEORAL [Concomitant]
     Indication: IMMUNOSUPPRESSION
     Dosage: 30 MG DAILY
     Dates: start: 20040101, end: 20091123
  5. KARDEGIC [Concomitant]
     Dosage: 75 MG, QD
  6. LEVOTHYROXINE SODIUM [Concomitant]
     Dosage: 50 MCG DAILY
  7. LASIX [Concomitant]
     Dosage: 40 MG QD
  8. DIFFU K [Concomitant]
     Dosage: 1 DF TID
  9. LERCANIDIPINE [Concomitant]
     Dosage: 10 MG QD
  10. PRAVASTATIN [Concomitant]
     Dosage: 20 MG QD
  11. EZETROL [Concomitant]
     Dosage: 1 DF QD
  12. MOPRAL [Concomitant]
     Dosage: 20 MG QD
  13. ZYLORIC [Concomitant]
     Dosage: 100 MG QD
  14. CACIT [Concomitant]
     Dosage: 500 MG QD
  15. UVEDOSE [Concomitant]
     Dosage: 100000 IU EVERY 3 MONTHS
  16. ART 50 [Concomitant]
     Dosage: 1 DF QD
  17. TAMSULOSIN HYDROCHLORIDE [Concomitant]
     Dosage: 1 DF QD

REACTIONS (9)
  - ATRIAL THROMBOSIS [None]
  - CARBOHYDRATE ANTIGEN 19-9 INCREASED [None]
  - EJECTION FRACTION DECREASED [None]
  - HEART TRANSPLANT REJECTION [None]
  - LEFT VENTRICULAR HYPERTROPHY [None]
  - PULMONARY EMBOLISM [None]
  - RIGHT ATRIAL DILATATION [None]
  - TENDON OPERATION [None]
  - TRICUSPID VALVE INCOMPETENCE [None]
